FAERS Safety Report 18390568 (Version 5)
Quarter: 2023Q1

REPORT INFORMATION
  Report Type: Spontaneous
  Country: PT (occurrence: PT)
  Receive Date: 20201015
  Receipt Date: 20230217
  Transmission Date: 20230417
  Serious: Yes (Hospitalization, Other)
  Sender: FDA-Public Use
  Company Number: None

PATIENT
  Age: 72 Year
  Sex: Male
  Weight: 100 kg

DRUGS (12)
  1. CIPROFLOXACIN [Suspect]
     Active Substance: CIPROFLOXACIN
     Indication: Orchitis
     Dosage: 500 MG, BID
     Route: 048
  2. CIPROFLOXACIN [Suspect]
     Active Substance: CIPROFLOXACIN
     Dosage: 1 COMPRIMIDO DE 12/12H
     Route: 048
     Dates: start: 20190928, end: 20190930
  3. EMPAGLIFLOZIN [Concomitant]
     Active Substance: EMPAGLIFLOZIN
     Indication: Product used for unknown indication
     Dosage: 1 PLUS 0 PLUS 0
     Route: 065
  4. LANTUS [Concomitant]
     Active Substance: INSULIN GLARGINE
     Indication: Product used for unknown indication
     Dosage: AO DEITAR, SOLUCAO INJETAVEL
     Route: 065
  5. LERCANIDIPINE [Concomitant]
     Active Substance: LERCANIDIPINE
     Indication: Product used for unknown indication
     Dosage: 0 PLUS 0 PLUS 1
     Route: 065
  6. BISOPROLOL FUMARATE [Concomitant]
     Active Substance: BISOPROLOL FUMARATE
     Indication: Product used for unknown indication
     Dosage: 1 PLUS 0 PLUS 0, COMPRIMIDO REVESTIDO
     Route: 065
  7. LASIX [Concomitant]
     Active Substance: FUROSEMIDE
     Indication: Product used for unknown indication
     Dosage: 1 PLUS 0 PLUS 0, COMPRIMIDO
     Route: 065
  8. INSULIN LISPRO [Concomitant]
     Active Substance: INSULIN LISPRO
     Indication: Product used for unknown indication
     Dosage: 8UI PLUS 81UI PLUS 8UI
     Route: 065
  9. ZOMARIST [Concomitant]
     Indication: Product used for unknown indication
     Dosage: 1 PLUS 0 PLUS 1, COMPRIMIDO REVESTIDO POR PELICULA
     Route: 065
  10. TROMALYT [Concomitant]
     Active Substance: ASPIRIN
     Indication: Product used for unknown indication
     Dosage: 0 PLUS 0 PLUS 1, COMPRIMIDO GASTRORRESISTENTE
     Route: 065
  11. ATORVASTATIN [Concomitant]
     Active Substance: ATORVASTATIN
     Indication: Product used for unknown indication
     Dosage: 0 PLUS 0 PLUS 1
     Route: 065
  12. AZILSARTAN KAMEDOXOMIL [Concomitant]
     Active Substance: AZILSARTAN KAMEDOXOMIL
     Indication: Product used for unknown indication
     Dosage: 1 PLUS 0 PLUS 0
     Route: 065

REACTIONS (5)
  - Acute generalised exanthematous pustulosis [Recovered/Resolved]
  - Pustule [Recovered/Resolved]
  - Rash [Recovered/Resolved]
  - Rash pruritic [Recovered/Resolved]
  - Pyrexia [Recovered/Resolved]

NARRATIVE: CASE EVENT DATE: 20190930
